FAERS Safety Report 9988032 (Version 2)
Quarter: 2014Q1

REPORT INFORMATION
  Report Type: Spontaneous
  Country: US (occurrence: US)
  Receive Date: 20140307
  Receipt Date: 20140325
  Transmission Date: 20141002
  Serious: Yes (Hospitalization, Other)
  Sender: FDA-Public Use
  Company Number: US-RB-064207-14

PATIENT
  Age: 28 Year
  Sex: Female

DRUGS (8)
  1. SUBUTEX [Suspect]
     Indication: DRUG DEPENDENCE
     Route: 060
     Dates: start: 200904, end: 200904
  2. SUBOXONE TABLET [Suspect]
     Indication: DRUG DEPENDENCE
     Route: 060
     Dates: start: 2008, end: 2008
  3. SUBOXONE TABLET [Suspect]
     Dosage: ONE AND A HALF TABLET DAILY; CUTTING
     Route: 060
     Dates: start: 2008, end: 200904
  4. SUBOXONE FILM [Suspect]
     Dosage: SUBOXONE FILM; FROM 8 TO 12 MG DAILY
     Route: 060
     Dates: start: 2010
  5. SUBOXONE FILM [Suspect]
     Dosage: SUBOXONE FILM; SELF TAPERED TO 4 MG DAILY
     Route: 060
  6. SUBOXONE FILM [Suspect]
     Dosage: SUBOXONE FILM
     Route: 060
     Dates: end: 201311
  7. SUBOXONE FILM [Suspect]
     Indication: DRUG DEPENDENCE
     Dosage: SUBOXONE FILM; HALF STRIP TWICE DAILY
     Route: 060
     Dates: start: 201401
  8. NICOTINE [Concomitant]
     Indication: PRODUCT USED FOR UNKNOWN INDICATION
     Dosage: 1 PACK PER DAY
     Route: 055

REACTIONS (8)
  - Feeling jittery [Recovered/Resolved]
  - Wrong technique in drug usage process [Not Recovered/Not Resolved]
  - Urinary tract infection [Recovered/Resolved]
  - Nephrolithiasis [Recovered/Resolved]
  - Vomiting [Recovered/Resolved]
  - Pain [Recovered/Resolved]
  - Maternal exposure during pregnancy [Recovered/Resolved]
  - Intentional underdose [Recovered/Resolved]
